FAERS Safety Report 9593065 (Version 1)
Quarter: 2013Q3

REPORT INFORMATION
  Report Type: Spontaneous
  Country: US (occurrence: None)
  Receive Date: 20130930
  Receipt Date: 20130930
  Transmission Date: 20140515
  Serious: Yes (Other)
  Sender: FDA-Public Use
  Company Number: 1000047680

PATIENT
  Age: 69 Year
  Sex: Female

DRUGS (5)
  1. LINZESS (LINACLOTIDE) (290 MICROGRAM, CAPSULES) [Suspect]
     Indication: IRRITABLE BOWEL SYNDROME
     Dosage: 290 MCG (290 MCG, 1 IN 1 D), ORAL
     Route: 048
     Dates: start: 201303
  2. LINZESS (LINACLOTIDE) (290 MICROGRAM, CAPSULES) [Suspect]
     Indication: CONSTIPATION
     Dosage: 290 MCG (290 MCG, 1 IN 1 D), ORAL
     Route: 048
     Dates: start: 201303
  3. LOTREL (AMLODIPINE, BENAZEPRIL) (AMLODIPINE, BENAZEPRIL) [Concomitant]
  4. ATENOLOL (ATENOLOL) (ATENOLOL) [Concomitant]
  5. GLIPIZIDE (GLIPIZIDE) (GLIPIZIDE) [Concomitant]

REACTIONS (1)
  - Weight increased [None]
